FAERS Safety Report 6661672-4 (Version None)
Quarter: 2010Q1

REPORT INFORMATION
  Report Type: 
  Country: None (occurrence: None)
  Receive Date: 20100331
  Receipt Date: 20090415
  Transmission Date: 20100710
  Serious: No
  Sender: FDA-Public Use
  Company Number: US-BRISTOL-MYERS SQUIBB COMPANY-14578462

PATIENT
  Age: 44 Year
  Sex: Female
  Weight: 54 kg

DRUGS (10)
  1. ERBITUX [Suspect]
     Indication: COLON CANCER METASTATIC
     Route: 042
     Dates: start: 20081001
  2. IRINOTECAN HCL [Concomitant]
  3. LEUCOVORIN CALCIUM [Concomitant]
  4. IMODIUM [Concomitant]
  5. MULTI-VITAMIN [Concomitant]
  6. IBUPROFEN [Concomitant]
  7. FLUOROURACIL [Concomitant]
  8. ZYRTEC [Concomitant]
     Indication: PREMEDICATION
     Route: 048
  9. TYLENOL-500 [Concomitant]
     Indication: PREMEDICATION
     Route: 048
  10. ANZEMET [Concomitant]
     Indication: PREMEDICATION
     Route: 042

REACTIONS (1)
  - DIPLOPIA [None]
